FAERS Safety Report 9508079 (Version 1)
Quarter: 2013Q3

REPORT INFORMATION
  Report Type: Spontaneous
  Country: IT (occurrence: IT)
  Receive Date: 20130909
  Receipt Date: 20130909
  Transmission Date: 20140515
  Serious: Yes (Hospitalization)
  Sender: FDA-Public Use
  Company Number: PHHY2013IT097209

PATIENT
  Age: 80 Year
  Sex: Male

DRUGS (9)
  1. AZITHROMYCIN [Suspect]
     Indication: PNEUMONIA
     Dosage: 500 MG, QD
     Route: 048
     Dates: start: 20130819, end: 20130820
  2. CEFEPIME [Suspect]
     Indication: PNEUMONIA
     Dosage: 2 G, ONCE/SINGLE
     Route: 030
     Dates: start: 20130819, end: 20130820
  3. ASCRIPTIN [Concomitant]
     Indication: MYOCARDIAL ISCHAEMIA
  4. DEURSIL [Concomitant]
     Dosage: 450 MG, UNK
  5. BIFRIZIDE [Concomitant]
     Indication: HYPERTENSION
  6. LASIX [Concomitant]
     Indication: HYPERTENSION
     Dosage: 25 MG, UNK
  7. XANAX [Concomitant]
     Dosage: 0.25 MG, UNK
  8. ONCO CARBIDE [Concomitant]
     Indication: MYELOPROLIFERATIVE DISORDER
     Dosage: 500 MG, UNK
  9. MANIDIPINE [Concomitant]

REACTIONS (3)
  - Oedema peripheral [Recovering/Resolving]
  - Erythema [Recovering/Resolving]
  - Rash [Recovering/Resolving]
